FAERS Safety Report 9439732 (Version 2)
Quarter: 2013Q3

REPORT INFORMATION
  Report Type: Spontaneous
  Country: DE (occurrence: DE)
  Receive Date: 20130805
  Receipt Date: 20130812
  Transmission Date: 20140515
  Serious: Yes (Hospitalization)
  Sender: FDA-Public Use
  Company Number: DE-AMGEN-DEUSP2013021859

PATIENT
  Age: 76 Year
  Sex: Female

DRUGS (3)
  1. ENBREL [Suspect]
     Indication: RHEUMATOID ARTHRITIS
     Dosage: 50 MG, WEEKLY
     Route: 058
     Dates: start: 201303, end: 201303
  2. ENBREL [Suspect]
     Dosage: UNK
     Route: 065
     Dates: start: 20130703
  3. PREDNISOLON                        /00016201/ [Concomitant]
     Dosage: 5 MG, DAILY
     Route: 048
     Dates: start: 1990

REACTIONS (2)
  - Pain [Recovered/Resolved]
  - Panic reaction [Recovered/Resolved]
